FAERS Safety Report 8671977 (Version 2)
Quarter: 2012Q4

REPORT INFORMATION
  Report Type: 
  Country: US (occurrence: US)
  Receive Date: 20120718
  Receipt Date: 20121203
  Transmission Date: 20130627
  Serious: No
  Sender: FDA-Public Use
  Company Number: US-009507513-1207USA004550

PATIENT

DRUGS (1)
  1. EMEND FOR INJECTION [Suspect]
     Dosage: UNK
     Route: 042

REACTIONS (1)
  - Scar [Recovered/Resolved]
